APPROVED DRUG PRODUCT: FOSFOMYCIN TROMETHAMINE
Active Ingredient: FOSFOMYCIN TROMETHAMINE
Strength: EQ 3GM BASE/PACKET
Dosage Form/Route: FOR SOLUTION;ORAL
Application: A212548 | Product #001 | TE Code: AA
Applicant: XIROMED PHARMA ESPANA SL
Approved: Oct 6, 2020 | RLD: No | RS: Yes | Type: RX